FAERS Safety Report 7435205-9 (Version None)
Quarter: 2011Q2

REPORT INFORMATION
  Report Type: 
  Country: None (occurrence: None)
  Receive Date: 20110425
  Receipt Date: 20110422
  Transmission Date: 20111010
  Serious: Yes (Hospitalization)
  Sender: FDA-Public Use
  Company Number: NL-ABBOTT-11P-114-0714855-00

PATIENT
  Sex: Female
  Weight: 50 kg

DRUGS (13)
  1. HYDROCHLOROTHIAZIDE [Concomitant]
     Indication: HYPERTENSION
     Route: 048
  2. PANTOPRAZOLE [Concomitant]
     Indication: PROPHYLAXIS
  3. VALSARTAN [Concomitant]
     Indication: HYPERTENSION
     Route: 048
  4. ALENDRONIC ACID/COLECALCIFEROL [Concomitant]
     Indication: OSTEOPOROSIS PROPHYLAXIS
     Dosage: 70MG/2800IU WEEKLY
     Route: 048
  5. HYDROXYCHLOROQUINE [Concomitant]
     Indication: RHEUMATOID ARTHRITIS
     Route: 048
  6. METHOTREXATE [Concomitant]
     Indication: RHEUMATOID ARTHRITIS
     Route: 048
  7. CALCIUM CARBONATE W/COLECALCIFEROL [Concomitant]
     Indication: OSTEOPOROSIS PROPHYLAXIS
     Dosage: 1.25G/400IU QD
     Route: 048
  8. FOLIC ACID [Concomitant]
     Indication: VITAMIN SUPPLEMENTATION
     Route: 048
  9. FENETICILLINE [Concomitant]
     Indication: ANTIBIOTIC PROPHYLAXIS
     Route: 048
  10. PREDNISOLONE [Concomitant]
     Indication: RHEUMATOID ARTHRITIS
     Route: 048
  11. PANTOPRAZOLE [Concomitant]
     Indication: GASTRIC DISORDER
     Route: 048
  12. ATENOLOL [Concomitant]
     Indication: HYPERTENSION
     Route: 048
  13. HUMIRA [Suspect]
     Indication: RHEUMATOID ARTHRITIS
     Route: 058
     Dates: start: 20081217

REACTIONS (6)
  - TOXICITY TO VARIOUS AGENTS [None]
  - PYREXIA [None]
  - WEIGHT DECREASED [None]
  - DEHYDRATION [None]
  - HYPERHIDROSIS [None]
  - FEELING ABNORMAL [None]
